FAERS Safety Report 25598206 (Version 1)
Quarter: 2025Q3

REPORT INFORMATION
  Report Type: Spontaneous
  Country: EU (occurrence: EU)
  Receive Date: 20250723
  Receipt Date: 20250723
  Transmission Date: 20251021
  Serious: Yes (Other)
  Sender: INSUD PHARMA
  Company Number: EU-INSUD PHARMA-2507BE05876

PATIENT

DRUGS (1)
  1. TESTOSTERONE CYPIONATE [Suspect]
     Active Substance: TESTOSTERONE CYPIONATE
     Indication: Transgender hormonal therapy
     Route: 030

REACTIONS (3)
  - Cervicitis gonococcal [Recovered/Resolved]
  - Infection [Recovered/Resolved]
  - Bacterial vaginosis [Unknown]
